FAERS Safety Report 10045645 (Version 2)
Quarter: 2014Q1

REPORT INFORMATION
  Report Type: Spontaneous
  Country: DE (occurrence: DE)
  Receive Date: 20140328
  Receipt Date: 20140328
  Transmission Date: 20141002
  Serious: Yes (Hospitalization)
  Sender: FDA-Public Use
  Company Number: DE-BRISTOL-MYERS SQUIBB COMPANY-20360178

PATIENT
  Sex: 0

DRUGS (1)
  1. FORXIGA [Suspect]
     Indication: TYPE 2 DIABETES MELLITUS

REACTIONS (3)
  - Polyuria [Recovered/Resolved]
  - Glycosuria [Recovered/Resolved]
  - Polydipsia [Recovered/Resolved]
